FAERS Safety Report 4360560-6 (Version None)
Quarter: 2004Q2

REPORT INFORMATION
  Report Type: 
  Country: None (occurrence: None)
  Receive Date: 20040519
  Receipt Date: 20040422
  Transmission Date: 20050107
  Serious: Yes (Death)
  Sender: FDA-Public Use
  Company Number: IT-ROCHE-365300

PATIENT
  Age: 58 Year
  Sex: Female

DRUGS (2)
  1. ROCEPHIN [Suspect]
     Indication: BRONCHITIS
     Dosage: REPORTED AS TAKEN ONCE. FORMULATION: VIAL.
     Route: 030
     Dates: start: 20040315, end: 20040315
  2. SOBREPIN [Suspect]
     Indication: BRONCHITIS
     Dosage: REPORTED AS TAKEN ONCE.  FORMULATION: VIAL.
     Route: 030
     Dates: start: 20040315, end: 20040315

REACTIONS (5)
  - ACUTE RESPIRATORY FAILURE [None]
  - BRONCHOSTENOSIS [None]
  - CARDIAC ARREST [None]
  - COMA [None]
  - HYPOXIA [None]
